FAERS Safety Report 7966653-6 (Version None)
Quarter: 2011Q4

REPORT INFORMATION
  Report Type: 
  Country: None (occurrence: None)
  Receive Date: 20111209
  Receipt Date: 20111206
  Transmission Date: 20120403
  Serious: No
  Sender: FDA-Public Use
  Company Number: US-BIOGENIDEC-2011BI041198

PATIENT
  Age: 48 Year
  Sex: Female

DRUGS (3)
  1. TYSABRI [Suspect]
     Indication: MULTIPLE SCLEROSIS
     Route: 042
     Dates: start: 20111007
  2. VICODIN [Concomitant]
     Indication: INTERVERTEBRAL DISC PROTRUSION
  3. BACLOFEN [Concomitant]
     Indication: PAIN IN EXTREMITY

REACTIONS (8)
  - PAIN IN EXTREMITY [None]
  - DEPRESSION [None]
  - NASAL CONGESTION [None]
  - SINUSITIS [None]
  - MULTIPLE SCLEROSIS RELAPSE [None]
  - INFLUENZA LIKE ILLNESS [None]
  - DIZZINESS [None]
  - ARTHRALGIA [None]
